FAERS Safety Report 11184804 (Version 1)
Quarter: 2015Q2

REPORT INFORMATION
  Report Type: Spontaneous
  Country: AR (occurrence: AR)
  Receive Date: 20150612
  Receipt Date: 20150612
  Transmission Date: 20150821
  Serious: Yes (Other)
  Sender: FDA-Public Use
  Company Number: AR-PFIZER INC-2014329268

PATIENT
  Age: 72 Year
  Sex: Female

DRUGS (1)
  1. SUTENT [Suspect]
     Active Substance: SUNITINIB MALATE
     Indication: METASTATIC RENAL CELL CARCINOMA
     Dosage: 50 MG, SCHEME 4/2
     Dates: start: 20140531

REACTIONS (7)
  - Abasia [Recovering/Resolving]
  - Visual impairment [Unknown]
  - Cerebrovascular accident [Recovered/Resolved]
  - Anaemia [Recovering/Resolving]
  - Amnesia [Recovered/Resolved]
  - Abdominal discomfort [Recovered/Resolved]
  - Platelet count decreased [Unknown]

NARRATIVE: CASE EVENT DATE: 201411
